FAERS Safety Report 8916216 (Version 2)
Quarter: 2014Q1

REPORT INFORMATION
  Report Type: Spontaneous
  Country: JP (occurrence: JP)
  Receive Date: 20121120
  Receipt Date: 20140113
  Transmission Date: 20141002
  Serious: Yes (Life-Threatening, Hospitalization)
  Sender: FDA-Public Use
  Company Number: JP-GLAXOSMITHKLINE-B0843621A

PATIENT
  Age: 51 Year
  Sex: Male

DRUGS (3)
  1. PAXIL [Suspect]
     Indication: DEPRESSION
     Route: 048
     Dates: start: 2006
  2. PAXIL [Suspect]
     Indication: DEPRESSION
     Route: 048
  3. JZOLOFT [Concomitant]
     Route: 048

REACTIONS (11)
  - Platelet count decreased [Recovered/Resolved]
  - Haemorrhage subcutaneous [Unknown]
  - Platelet count decreased [Unknown]
  - Immune thrombocytopenic purpura [Recovering/Resolving]
  - Pulmonary alveolar haemorrhage [Unknown]
  - Mouth haemorrhage [Unknown]
  - General physical health deterioration [Unknown]
  - Nasopharyngitis [Recovering/Resolving]
  - Respiratory disorder [Unknown]
  - Purpura [Unknown]
  - Petechiae [Unknown]
